FAERS Safety Report 25997453 (Version 1)
Quarter: 2025Q4

REPORT INFORMATION
  Report Type: Spontaneous
  Country: None (occurrence: EU)
  Receive Date: 20251104
  Receipt Date: 20251104
  Transmission Date: 20260118
  Serious: Yes (Other)
  Sender: AURINIA PHARMACEUTICALS
  Company Number: EU-MMM-Otsuka-6M3J81WO

PATIENT

DRUGS (1)
  1. LUPKYNIS [Suspect]
     Active Substance: VOCLOSPORIN
     Indication: Lupus nephritis

REACTIONS (1)
  - Lupus nephritis [Unknown]
